FAERS Safety Report 4744459-9 (Version None)
Quarter: 2005Q3

REPORT INFORMATION
  Report Type: 
  Country: None (occurrence: None)
  Receive Date: 20050809
  Receipt Date: 20050728
  Transmission Date: 20060218
  Serious: Yes (Other)
  Sender: FDA-Public Use
  Company Number: 2005108627

PATIENT
  Sex: Female

DRUGS (2)
  1. DETROL [Suspect]
     Indication: HYPERTONIC BLADDER
     Dosage: (DAILY INTERVAL:  EVERY DAY),
     Dates: start: 19970101
  2. CHEMOTHERAPY NOS (CHEMOTHERAPY NOS) [Suspect]
     Indication: BREAST CANCER
     Dates: start: 19980101

REACTIONS (18)
  - BLADDER CYST [None]
  - BLOOD OESTROGEN INCREASED [None]
  - BODY HEIGHT DECREASED [None]
  - BREAST CANCER FEMALE [None]
  - COELIAC DISEASE [None]
  - COLONIC POLYP [None]
  - CONDITION AGGRAVATED [None]
  - CONSTIPATION [None]
  - CYSTITIS NONINFECTIVE [None]
  - DRUG INEFFECTIVE [None]
  - GASTROOESOPHAGEAL REFLUX DISEASE [None]
  - OSTEOPOROSIS [None]
  - POST PROCEDURAL DIARRHOEA [None]
  - RHEUMATOID ARTHRITIS [None]
  - STOMACH DISCOMFORT [None]
  - THYROID DISORDER [None]
  - URINARY RETENTION [None]
  - WEIGHT INCREASED [None]
